FAERS Safety Report 10833444 (Version 1)
Quarter: 2015Q1

REPORT INFORMATION
  Report Type: Spontaneous
  Country: US (occurrence: US)
  Receive Date: 20150219
  Receipt Date: 20150219
  Transmission Date: 20150721
  Serious: Yes (Other)
  Sender: FDA-Public Use
  Company Number: US-ABBVIE-15K-163-1346692-00

PATIENT
  Sex: Female

DRUGS (5)
  1. FOLIC ACID. [Concomitant]
     Active Substance: FOLIC ACID
     Indication: PRODUCT USED FOR UNKNOWN INDICATION
  2. METHOTREXATE [Concomitant]
     Active Substance: METHOTREXATE
     Indication: PRODUCT USED FOR UNKNOWN INDICATION
  3. HUMIRA [Suspect]
     Active Substance: ADALIMUMAB
     Indication: PSORIATIC ARTHROPATHY
     Route: 065
  4. HUMIRA [Suspect]
     Active Substance: ADALIMUMAB
     Route: 065
     Dates: start: 20150123
  5. ENBREL [Suspect]
     Active Substance: ETANERCEPT
     Indication: PRODUCT USED FOR UNKNOWN INDICATION
     Route: 065

REACTIONS (16)
  - Wheezing [Recovered/Resolved]
  - Chest discomfort [Recovered/Resolved]
  - Urticaria [Recovered/Resolved]
  - Pain in extremity [Unknown]
  - Injection site urticaria [Unknown]
  - Pain [Unknown]
  - Urticaria [Unknown]
  - Injection site swelling [Unknown]
  - Chest discomfort [Unknown]
  - Arthralgia [Not Recovered/Not Resolved]
  - Joint stiffness [Unknown]
  - Dyspnoea [Recovered/Resolved]
  - Pruritus [Unknown]
  - Injection site warmth [Unknown]
  - Hypersensitivity [Recovered/Resolved]
  - Injection site erythema [Unknown]

NARRATIVE: CASE EVENT DATE: 201501
